FAERS Safety Report 8134150-3 (Version None)
Quarter: 2012Q1

REPORT INFORMATION
  Report Type: 
  Country: None (occurrence: None)
  Receive Date: 20120207
  Receipt Date: 20120131
  Transmission Date: 20120608
  Serious: Yes (Hospitalization, Other)
  Sender: FDA-Public Use
  Company Number: 2011SP048918

PATIENT
  Sex: Female

DRUGS (9)
  1. INTRON A [Suspect]
     Indication: MALIGNANT MELANOMA
     Dosage: 40 MIU; ;IV  30 MIU; ;IV 22.6 MIU; ;TIW;IV; 22.6 MIU;TIW ; 22.6 MIU;TIW
     Route: 042
     Dates: start: 20111016
  2. INTRON A [Suspect]
     Indication: MALIGNANT MELANOMA
     Dosage: 40 MIU; ;IV  30 MIU; ;IV 22.6 MIU; ;TIW;IV; 22.6 MIU;TIW ; 22.6 MIU;TIW
     Route: 042
     Dates: start: 20111006, end: 20111201
  3. INTRON A [Suspect]
     Indication: MALIGNANT MELANOMA
     Dosage: 40 MIU; ;IV  30 MIU; ;IV 22.6 MIU; ;TIW;IV; 22.6 MIU;TIW ; 22.6 MIU;TIW
     Route: 042
     Dates: start: 20120116
  4. INTRON A [Suspect]
     Indication: MALIGNANT MELANOMA
     Dosage: 40 MIU; ;IV  30 MIU; ;IV 22.6 MIU; ;TIW;IV; 22.6 MIU;TIW ; 22.6 MIU;TIW
     Route: 042
     Dates: start: 20111003
  5. INTRON A [Suspect]
     Indication: MALIGNANT MELANOMA
     Dosage: 40 MIU; ;IV  30 MIU; ;IV 22.6 MIU; ;TIW;IV; 22.6 MIU;TIW ; 22.6 MIU;TIW
     Route: 042
     Dates: start: 20110829
  6. MICARDIS [Concomitant]
  7. ZOFRAN [Concomitant]
  8. ANTIACID [Concomitant]
  9. ACETAMINOPHEN [Concomitant]

REACTIONS (11)
  - LIVER FUNCTION TEST ABNORMAL [None]
  - LOWER RESPIRATORY TRACT INFECTION [None]
  - CARDIAC FLUTTER [None]
  - NAUSEA [None]
  - CHILLS [None]
  - BODY TEMPERATURE INCREASED [None]
  - LETHARGY [None]
  - RASH [None]
  - HEADACHE [None]
  - FATIGUE [None]
  - DYSPNOEA [None]
